FAERS Safety Report 8513756-3 (Version None)
Quarter: 2012Q3

REPORT INFORMATION
  Report Type: 
  Country: None (occurrence: None)
  Receive Date: 20120705
  Receipt Date: 20120625
  Transmission Date: 20120928
  Serious: Yes (Other)
  Sender: FDA-Public Use
  Company Number: AUR-APL-2011-06072

PATIENT
  Age: 69 Year
  Sex: Female
  Weight: 68.03 kg

DRUGS (11)
  1. TRAZODONE HCL [Concomitant]
  2. OMEPRAZOLE [Concomitant]
  3. LYRICA [Concomitant]
  4. GEMFIBROZIL (FEMFIBROZIL) [Concomitant]
  5. METFFORMIN HYDROCHLORIDE [Concomitant]
  6. EFFEXOR XR [Suspect]
     Indication: RADICULITIS
     Dosage: 300 MG (150 MG, 2 IN 1 D), ORAL
     Route: 048
     Dates: end: 20111122
  7. ENALAPRIL MALEATE [Concomitant]
  8. VENLAFAXINE HCL [Suspect]
     Indication: RADICULITIS
     Dosage: 2 DOSAGE FORMS, ORAL
     Route: 048
     Dates: start: 20111122
  9. LEVOTHYROXINE SODIUM [Concomitant]
  10. GLIPIZIDE [Concomitant]
  11. METOPROLOL TARTRATE [Concomitant]

REACTIONS (4)
  - PAIN [None]
  - DRUG DEPENDENCE [None]
  - DRUG INEFFECTIVE [None]
  - DRUG WITHDRAWAL SYNDROME [None]
